FAERS Safety Report 16937622 (Version 1)
Quarter: 2019Q4

REPORT INFORMATION
  Report Type: Spontaneous
  Country: GB (occurrence: GB)
  Receive Date: 20191018
  Receipt Date: 20191018
  Transmission Date: 20200122
  Serious: Yes (Other)
  Sender: FDA-Public Use
  Company Number: GB-MYLANLABS-2019M1097925

PATIENT
  Age: 74 Year
  Sex: Female
  Weight: 74 kg

DRUGS (8)
  1. ATORVASTATIN [Suspect]
     Active Substance: ATORVASTATIN
     Indication: PRODUCT USED FOR UNKNOWN INDICATION
     Dosage: 10 MILLIGRAM, QD
     Route: 065
     Dates: start: 20190725
  2. ADCAL                              /00056901/ [Concomitant]
     Active Substance: CARBAZOCHROME
     Dosage: 2 DOSAGE FORM, QD, LEMON
     Dates: start: 20180709, end: 20190702
  3. CANDESARTAN. [Concomitant]
     Active Substance: CANDESARTAN
     Dosage: 1 DOSAGE FORM, QD
     Dates: start: 20180709
  4. ATENOLOL. [Concomitant]
     Active Substance: ATENOLOL
     Dosage: 1 DOSAGE FORM, QD, EACH MORNING
     Dates: start: 20180709
  5. CALCI-D [Concomitant]
     Active Substance: CALCIUM CARBONATE\CHOLECALCIFEROL
     Dosage: 1 DOSAGE FORM, QD
     Dates: start: 20190702
  6. ALLOPURINOL. [Concomitant]
     Active Substance: ALLOPURINOL
     Dosage: 1 DOSAGE FORM, QD
     Dates: start: 20190517, end: 20190614
  7. HYDROXOCOBALAMIN [Concomitant]
     Active Substance: HYDROXOCOBALAMIN
     Dosage: UNK, USE AS DIRECTED
     Dates: start: 20190730, end: 20190731
  8. AMLODIPINE [Concomitant]
     Active Substance: AMLODIPINE BESYLATE
     Dosage: 1 DOSAGE FORM, QD
     Dates: start: 20180709

REACTIONS (3)
  - Nausea [Unknown]
  - Halo vision [Recovered/Resolved]
  - Dizziness [Unknown]

NARRATIVE: CASE EVENT DATE: 20190816
